FAERS Safety Report 16344195 (Version 2)
Quarter: 2019Q2

REPORT INFORMATION
  Report Type: Spontaneous
  Country: DE (occurrence: DE)
  Receive Date: 20190522
  Receipt Date: 20190618
  Transmission Date: 20190711
  Serious: Yes (Death, Other)
  Sender: FDA-Public Use
  Company Number: DE-PFIZER INC-2019213275

PATIENT
  Age: 80 Year
  Sex: Female

DRUGS (2)
  1. TAVOR EXPIDET [Suspect]
     Active Substance: LORAZEPAM
     Indication: SEDATION
  2. TAVOR EXPIDET [Suspect]
     Active Substance: LORAZEPAM
     Indication: FEELING OF RELAXATION
     Dosage: UNK, 1X/DAY
     Dates: start: 201704, end: 201704

REACTIONS (3)
  - Death [Fatal]
  - Paradoxical drug reaction [Recovered/Resolved]
  - Paranoia [Recovered/Resolved]

NARRATIVE: CASE EVENT DATE: 201704
